FAERS Safety Report 17432023 (Version 26)
Quarter: 2021Q4

REPORT INFORMATION
  Report Type: Spontaneous
  Country: US (occurrence: US)
  Receive Date: 20200218
  Receipt Date: 20211012
  Transmission Date: 20220303
  Serious: Yes (Disabling, Other)
  Sender: FDA-Public Use
  Company Number: US-PFIZER INC-2020071064

PATIENT
  Age: 61 Year
  Sex: Male

DRUGS (8)
  1. LYRICA [Suspect]
     Active Substance: PREGABALIN
     Indication: Spinal fracture
     Dosage: UNK
     Dates: start: 2019
  2. LYRICA [Suspect]
     Active Substance: PREGABALIN
     Indication: Pain
     Dosage: 100 MG, 3X/DAY (AS NEEDED)
     Route: 048
  3. LYRICA [Suspect]
     Active Substance: PREGABALIN
     Indication: Diabetic neuropathy
     Dosage: 100 MG, 3X/DAY
     Route: 048
  4. LYRICA [Suspect]
     Active Substance: PREGABALIN
     Indication: Neuralgia
     Dosage: 75 MG, 3X/DAY
     Route: 048
  5. LYRICA [Suspect]
     Active Substance: PREGABALIN
     Dosage: 100 MG, 3X/DAY
     Route: 048
  6. METFORMIN [Concomitant]
     Active Substance: METFORMIN HYDROCHLORIDE
     Indication: Diabetes mellitus
     Dosage: UNK
  7. XANAX [Concomitant]
     Active Substance: ALPRAZOLAM
     Dosage: 2 MG, 3X/DAY
  8. XANAX [Concomitant]
     Active Substance: ALPRAZOLAM
     Dosage: UNK (DECREASE DOSAGE)

REACTIONS (24)
  - Cervical vertebral fracture [Unknown]
  - Spinal fracture [Not Recovered/Not Resolved]
  - Deafness [Unknown]
  - Intervertebral disc protrusion [Unknown]
  - Mental impairment [Not Recovered/Not Resolved]
  - Skin discolouration [Unknown]
  - Blindness [Unknown]
  - Hip fracture [Unknown]
  - Suicidal ideation [Unknown]
  - Constipation [Unknown]
  - Pain [Unknown]
  - Tinnitus [Unknown]
  - Pain in extremity [Unknown]
  - Vomiting [Unknown]
  - Tooth loss [Unknown]
  - Loss of personal independence in daily activities [Unknown]
  - Hypoaesthesia [Unknown]
  - Visual impairment [Unknown]
  - Illness [Unknown]
  - Aphasia [Unknown]
  - Headache [Unknown]
  - Abdominal discomfort [Unknown]
  - Frustration tolerance decreased [Unknown]
  - Thinking abnormal [Unknown]

NARRATIVE: CASE EVENT DATE: 20190101
